FAERS Safety Report 5607480-4 (Version None)
Quarter: 2008Q1

REPORT INFORMATION
  Report Type: 
  Country: None (occurrence: None)
  Receive Date: 20080130
  Receipt Date: 20080117
  Transmission Date: 20080703
  Serious: Yes (Other)
  Sender: FDA-Public Use
  Company Number: US-ELI_LILLY_AND_COMPANY-US200801003528

PATIENT
  Sex: Female

DRUGS (3)
  1. BYETTA [Suspect]
     Dosage: 5 UG, UNK
     Route: 058
  2. BYETTA [Suspect]
     Dosage: 10 UG, UNK
     Route: 058
  3. METFORMIN HCL [Concomitant]

REACTIONS (1)
  - PANCREATITIS [None]
